FAERS Safety Report 10296043 (Version 2)
Quarter: 2014Q3

REPORT INFORMATION
  Report Type: Spontaneous
  Country: US (occurrence: US)
  Receive Date: 20140710
  Receipt Date: 20140710
  Transmission Date: 20150326
  Serious: Yes (Death, Life-Threatening)
  Sender: FDA-Public Use
  Company Number: US-NAPPMUNDI-USA-2014-0114324

PATIENT
  Age: 27 Year
  Sex: Male

DRUGS (1)
  1. BUTRANS [Suspect]
     Active Substance: BUPRENORPHINE
     Indication: PRODUCT USED FOR UNKNOWN INDICATION
     Route: 062

REACTIONS (4)
  - Respiratory arrest [Fatal]
  - Respiratory depression [Unknown]
  - Overdose [Fatal]
  - Substance abuse [Fatal]

NARRATIVE: CASE EVENT DATE: 201405
